FAERS Safety Report 5505812-9 (Version None)
Quarter: 2007Q4

REPORT INFORMATION
  Report Type: 
  Country: None (occurrence: None)
  Receive Date: 20071102
  Receipt Date: 20071030
  Transmission Date: 20080405
  Serious: No
  Sender: FDA-Public Use
  Company Number: US-BOEHRINGER INGELHEIM PHARMACEUTICALS, INC.-2007-BP-05623BP

PATIENT
  Age: 64 Year
  Sex: Female

DRUGS (3)
  1. MICARDIS [Suspect]
     Indication: HYPERTENSION
     Route: 048
  2. TOPROL-XL [Concomitant]
  3. NORVASC [Concomitant]

REACTIONS (3)
  - ANXIETY [None]
  - FEELING JITTERY [None]
  - HEADACHE [None]
